FAERS Safety Report 16682749 (Version 9)
Quarter: 2021Q4

REPORT INFORMATION
  Report Type: Report from Study
  Country: MX (occurrence: MX)
  Receive Date: 20190808
  Receipt Date: 20211102
  Transmission Date: 20220303
  Serious: Yes (Other)
  Sender: FDA-Public Use
  Company Number: MX-BAYER-2019-120624

PATIENT
  Age: 58 Year
  Sex: Male

DRUGS (7)
  1. STIVARGA [Suspect]
     Active Substance: REGORAFENIB
     Indication: Hepatocellular carcinoma
     Dosage: 160 MG, QD
     Dates: start: 20180914, end: 20200305
  2. STIVARGA [Suspect]
     Active Substance: REGORAFENIB
     Indication: Hepatocellular carcinoma
     Dosage: 160 MG, QD
     Route: 048
     Dates: end: 20210128
  3. STIVARGA [Suspect]
     Active Substance: REGORAFENIB
     Indication: Hepatocellular carcinoma
     Dosage: 160 MG, QD
     Route: 048
     Dates: end: 20210426
  4. STIVARGA [Suspect]
     Active Substance: REGORAFENIB
     Indication: Hepatocellular carcinoma
     Dosage: 160 MG, QD
     Route: 048
     Dates: end: 20210820
  5. TELMISARTAN [Concomitant]
     Active Substance: TELMISARTAN
     Indication: Hypertension
     Dosage: 80 MG, QD
     Route: 048
     Dates: start: 20100101
  6. PREGABALIN [Concomitant]
     Active Substance: PREGABALIN
     Indication: Anxiety
     Dosage: 75 MG, QD
     Route: 048
     Dates: start: 20201101
  7. NIFEDIPINE [Concomitant]
     Active Substance: NIFEDIPINE
     Indication: Hypertension
     Dosage: 30 MG, QD
     Route: 048
     Dates: start: 20210101

REACTIONS (4)
  - Constipation [Not Recovered/Not Resolved]
  - Abdominal pain upper [Not Recovered/Not Resolved]
  - Headache [Not Recovered/Not Resolved]
  - Weight decreased [Not Recovered/Not Resolved]

NARRATIVE: CASE EVENT DATE: 20190620
